FAERS Safety Report 17812793 (Version 2)
Quarter: 2020Q3

REPORT INFORMATION
  Report Type: Report from Study
  Country: None (occurrence: CO)
  Receive Date: 20200521
  Receipt Date: 20200923
  Transmission Date: 20201102
  Serious: Yes (Other)
  Sender: FDA-Public Use
  Company Number: CO-ABBVIE-20K-036-3413496-00

PATIENT
  Age: 36 Year
  Sex: Female
  Weight: 58 kg

DRUGS (2)
  1. HUMIRA [Suspect]
     Active Substance: ADALIMUMAB
     Indication: ANKYLOSING SPONDYLITIS
     Route: 058
  2. HUMIRA [Suspect]
     Active Substance: ADALIMUMAB
     Indication: ANKYLOSING SPONDYLITIS
     Route: 058
     Dates: start: 20170808

REACTIONS (6)
  - Lip swelling [Recovering/Resolving]
  - Eye inflammation [Recovering/Resolving]
  - Anxiety [Recovering/Resolving]
  - Depression [Recovering/Resolving]
  - Rash [Recovering/Resolving]
  - Back pain [Recovering/Resolving]

NARRATIVE: CASE EVENT DATE: 2019
